FAERS Safety Report 5598415-1 (Version None)
Quarter: 2008Q1

REPORT INFORMATION
  Report Type: 
  Country: None (occurrence: None)
  Receive Date: 20080122
  Receipt Date: 20080114
  Transmission Date: 20080703
  Serious: Yes (Hospitalization)
  Sender: FDA-Public Use
  Company Number: IT-JNJFOC-20080104422

PATIENT
  Age: 48 Year
  Sex: Female

DRUGS (1)
  1. CAELYX [Suspect]
     Indication: ADENOCARCINOMA
     Route: 042

REACTIONS (3)
  - DYSPNOEA [None]
  - HYPOTENSION [None]
  - RASH [None]
